FAERS Safety Report 10503370 (Version 2)
Quarter: 2014Q4

REPORT INFORMATION
  Report Type: Spontaneous
  Country: IT (occurrence: IT)
  Receive Date: 20141008
  Receipt Date: 20141022
  Transmission Date: 20150528
  Serious: Yes (Hospitalization)
  Sender: FDA-Public Use
  Company Number: IT-ACCORD-026227

PATIENT
  Age: 60 Year
  Sex: Female
  Weight: 85 kg

DRUGS (3)
  1. PERJETA [Concomitant]
     Active Substance: PERTUZUMAB
     Dosage: 400 MG DAILY?EXPIRY DATE: 31-MAR-2014
     Route: 042
     Dates: start: 20140710, end: 20140731
  2. DOCETAXEL ACCORD [Suspect]
     Active Substance: DOCETAXEL
     Indication: BREAST CANCER METASTATIC
     Dosage: BATCH EXPIRY: JAN-2016 (CAPTURED AS PER CONFIRMATION FROM MAH.
     Route: 042
     Dates: start: 20140710, end: 20140731
  3. HERCEPTIN [Concomitant]
     Active Substance: TRASTUZUMAB
     Dosage: 500 MG DAILY?BATCH EXPIRY DATE: 30-NOV-2017?MAH: ROCHE
     Route: 042
     Dates: start: 20140710, end: 20140731

REACTIONS (4)
  - Conjunctival pallor [Recovered/Resolved]
  - Loss of consciousness [Recovered/Resolved]
  - Pallor [Recovered/Resolved]
  - Hypotension [Recovered/Resolved]

NARRATIVE: CASE EVENT DATE: 20140731
